FAERS Safety Report 11779003 (Version 1)
Quarter: 2015Q4

REPORT INFORMATION
  Report Type: Report from Study
  Country: AU (occurrence: AU)
  Receive Date: 20151125
  Receipt Date: 20151125
  Transmission Date: 20160304
  Serious: Yes (Hospitalization, Other)
  Sender: FDA-Public Use
  Company Number: AU-ABBVIE-15P-008-1493850-00

PATIENT
  Sex: Female

DRUGS (1)
  1. DUODOPA [Suspect]
     Active Substance: CARBIDOPA\LEVODOPA
     Indication: PARKINSON^S DISEASE
     Dosage: MD: 9.5ML, CR 2ML AND ED 1ML
     Route: 050
     Dates: start: 2008

REACTIONS (4)
  - Fluid intake reduced [Unknown]
  - Dyskinesia [Unknown]
  - Hypophagia [Unknown]
  - Refusal of treatment by patient [Unknown]
